FAERS Safety Report 5885844-1 (Version None)
Quarter: 2008Q3

REPORT INFORMATION
  Report Type: 
  Country: None (occurrence: None)
  Receive Date: 20080917
  Receipt Date: 20080903
  Transmission Date: 20090109
  Serious: Yes (Other)
  Sender: FDA-Public Use
  Company Number: US-JNJFOC-20080902984

PATIENT
  Age: 81 Year
  Sex: Female

DRUGS (1)
  1. ASPIRIN [Suspect]
     Indication: CARDIAC PACEMAKER INSERTION

REACTIONS (1)
  - HAEMORRHAGIC EROSIVE GASTRITIS [None]
